FAERS Safety Report 20795654 (Version 1)
Quarter: 2022Q2

REPORT INFORMATION
  Report Type: Report from Study
  Country: IT (occurrence: IT)
  Receive Date: 20220506
  Receipt Date: 20220506
  Transmission Date: 20220721
  Serious: Yes (Hospitalization)
  Sender: FDA-Public Use
  Company Number: None

PATIENT
  Age: 70 Year
  Sex: Female

DRUGS (4)
  1. RAMIPRIL [Suspect]
     Active Substance: RAMIPRIL
     Indication: Hypertension
     Dosage: 1 DF , FREQUENCY TIME : 1 DAY
     Route: 048
     Dates: end: 20220225
  2. DOXAZOSIN MESYLATE [Suspect]
     Active Substance: DOXAZOSIN MESYLATE
     Indication: Hypertension
     Dosage: 1 DF , FREQUENCY TIME : 1 DAY
     Route: 048
     Dates: end: 20220225
  3. QUALIDOFTA [Concomitant]
     Indication: Glaucoma
     Dosage: UNIT DOSE : 1 DF , STRENGTH : 2 MG/ML
     Route: 047
  4. ALBUTEROL [Concomitant]
     Active Substance: ALBUTEROL
     Indication: Asthma
     Dosage: 1 DF , BRONCOVALEAS 100 MICROGRAMMI/SPRUZZO SOSPENSIONE PRESSURIZZATA PER INA
     Route: 048

REACTIONS (1)
  - Haematoma [Recovering/Resolving]

NARRATIVE: CASE EVENT DATE: 20220222
